FAERS Safety Report 26140324 (Version 1)
Quarter: 2025Q4

REPORT INFORMATION
  Report Type: Spontaneous
  Country: US (occurrence: None)
  Receive Date: 20251209
  Receipt Date: 20251209
  Transmission Date: 20260118
  Serious: Yes (Death)
  Sender: FDA-CTU
  Company Number: None

PATIENT
  Age: 47 Year
  Sex: Male
  Weight: 79.65 kg

DRUGS (4)
  1. HERBALS\MITRAGYNINE [Suspect]
     Active Substance: HERBALS\MITRAGYNINE
     Indication: Neck injury
     Dosage: OTHER FREQUENCY : WHENEVER;
     Route: 048
  2. HERBALS\MITRAGYNINE [Suspect]
     Active Substance: HERBALS\MITRAGYNINE
     Indication: Internal fixation of spine
  3. CLONAZEPAM [Suspect]
     Active Substance: CLONAZEPAM
  4. ORPHENADRINE [Concomitant]
     Active Substance: ORPHENADRINE

REACTIONS (2)
  - Overdose [None]
  - Toxicity to various agents [None]

NARRATIVE: CASE EVENT DATE: 20250801
